FAERS Safety Report 6689136-2 (Version None)
Quarter: 2010Q2

REPORT INFORMATION
  Report Type: 
  Country: None (occurrence: None)
  Receive Date: 20100415
  Receipt Date: 20100330
  Transmission Date: 20101027
  Serious: Yes (Hospitalization)
  Sender: FDA-Public Use
  Company Number: B0646433A

PATIENT

DRUGS (1)
  1. PROPRANOLOL HCL [Suspect]
     Dosage: ORAL
     Route: 048

REACTIONS (4)
  - CIRCULATORY COLLAPSE [None]
  - DRUG TOXICITY [None]
  - OVERDOSE [None]
  - VENTRICULAR HYPOKINESIA [None]
